FAERS Safety Report 25389630 (Version 1)
Quarter: 2025Q2

REPORT INFORMATION
  Report Type: Spontaneous
  Country: US (occurrence: None)
  Receive Date: 20250602
  Receipt Date: 20250602
  Transmission Date: 20250716
  Serious: Yes (Hospitalization)
  Sender: FDA-CTU
  Company Number: None

PATIENT
  Age: 56 Year
  Sex: Female
  Weight: 106 kg

DRUGS (1)
  1. ISONIAZID [Suspect]
     Active Substance: ISONIAZID
     Indication: Tuberculosis
     Dosage: FREQUENCY : DAILY;?
     Route: 048
     Dates: start: 20240620, end: 20241006

REACTIONS (2)
  - Anaemia [None]
  - Aplasia pure red cell [None]

NARRATIVE: CASE EVENT DATE: 20241006
